FAERS Safety Report 23251471 (Version 1)
Quarter: 2023Q4

REPORT INFORMATION
  Report Type: Spontaneous
  Country: US (occurrence: US)
  Receive Date: 20231201
  Receipt Date: 20231201
  Transmission Date: 20240110
  Serious: Yes (Other)
  Sender: FDA-Public Use
  Company Number: US-CURIUM-2023000898

PATIENT
  Age: 41 Year
  Sex: Male

DRUGS (1)
  1. SODIUM IODIDE I-131 [Suspect]
     Active Substance: SODIUM IODIDE I-131
     Indication: Poorly differentiated thyroid carcinoma
     Route: 065

REACTIONS (1)
  - Tracheo-oesophageal fistula [Unknown]
